FAERS Safety Report 6785340-3 (Version None)
Quarter: 2010Q2

REPORT INFORMATION
  Report Type: 
  Country: None (occurrence: None)
  Receive Date: 20100623
  Receipt Date: 20100616
  Transmission Date: 20101027
  Serious: Yes (Other)
  Sender: FDA-Public Use
  Company Number: US-ASTRAZENECA-2009UW11001

PATIENT
  Age: 11531 Day
  Sex: Male

DRUGS (9)
  1. SEROQUEL [Suspect]
     Route: 048
     Dates: start: 20020417
  2. ACTOS [Concomitant]
     Dates: start: 20070601
  3. TRICOR [Concomitant]
     Dates: start: 20070601
  4. PAXIL [Concomitant]
     Dates: start: 20070601
  5. ULTRAM [Concomitant]
     Dates: start: 20070601
  6. METFORMIN [Concomitant]
     Dates: start: 20070601
  7. LANTUS [Concomitant]
     Dates: start: 20070601
  8. HUMULIN N [Concomitant]
     Dates: start: 20070601
  9. HUMULIN R [Concomitant]
     Dates: start: 20070601

REACTIONS (4)
  - DIABETIC KETOACIDOSIS [None]
  - HYPERGLYCAEMIA [None]
  - NEUROPATHY PERIPHERAL [None]
  - TYPE 2 DIABETES MELLITUS [None]
